FAERS Safety Report 8366490-7 (Version None)
Quarter: 2012Q2

REPORT INFORMATION
  Report Type: 
  Country: None (occurrence: None)
  Receive Date: 20120517
  Receipt Date: 20120510
  Transmission Date: 20120825
  Serious: Yes (Hospitalization)
  Sender: FDA-Public Use
  Company Number: US-TEVA-274100USA

PATIENT
  Sex: Female
  Weight: 65 kg

DRUGS (30)
  1. FISH OIL [Concomitant]
     Indication: MEDICAL DIET
     Dosage: 1000 MILLIGRAM;
  2. NITROGLYCERIN [Concomitant]
     Indication: CORONARY ARTERY DISEASE
     Route: 060
  3. LOPERAMIDE HCL [Concomitant]
     Indication: DIARRHOEA
     Dosage: 1-2 TABLETS
     Dates: start: 20110221
  4. IRINOTECAN HCL [Suspect]
     Indication: NEOPLASM
     Dosage: ON DAY 1 OF EACH 28 DAY CYCLE
     Route: 042
     Dates: start: 20110110
  5. ENOXAPARIN SODIUM [Concomitant]
     Indication: PULMONARY EMBOLISM
     Dosage: 100 MILLIGRAM;
     Dates: start: 20090928, end: 20110328
  6. NOVOFINE [Concomitant]
     Indication: DIABETES MELLITUS
     Dosage: 32G X 6 MM
     Dates: start: 20081215
  7. ROSUVASTATIN CALCIUM [Concomitant]
     Indication: HYPERCHOLESTEROLAEMIA
     Dosage: 20 MILLIGRAM;
  8. ASPIRIN [Concomitant]
     Dosage: 325 MILLIGRAM;
  9. FLUOROURACIL [Suspect]
     Indication: NEOPLASM
     Dosage: 46 HR INFUSION ON DAY 1, 15 OF EACH 28 DAY CYCLE
     Route: 042
     Dates: start: 20110110
  10. SILICON DIOXIDE W/SIMETICONE [Concomitant]
     Indication: FLATULENCE
     Dates: start: 20110110
  11. FENTANYL-100 [Concomitant]
     Indication: BACK PAIN
     Route: 062
     Dates: start: 20101228
  12. DOCOSANOL [Concomitant]
     Indication: STOMATITIS
     Dates: start: 20110126
  13. INSULIN DETEMIR [Concomitant]
     Indication: DIABETES MELLITUS
     Dosage: 30 UNIT
     Dates: start: 20081215
  14. LEVOTHYROXINE SODIUM [Concomitant]
     Indication: HYPOTHYROIDISM
     Dosage: 100 MICROGRAM;
  15. OXYCODONE HCL AND ACETAMINOPHEN [Concomitant]
     Indication: BACK PAIN
     Dosage: 5/325MG
  16. PANCREATIN TRIPLE STRENGTH CAP [Concomitant]
     Indication: MEDICAL DIET
  17. MILK THISTLE [Concomitant]
     Indication: MEDICAL DIET
     Dosage: 200 MILLIGRAM;
     Dates: start: 20110205
  18. MAGIC MOUTHWASH [Concomitant]
     Indication: STOMATITIS
     Dates: start: 20110228
  19. CALCIUM D3 [Concomitant]
     Indication: MEDICAL DIET
     Dosage: 1 TABLET;
  20. ENOXAPARIN SODIUM [Concomitant]
     Indication: DEEP VEIN THROMBOSIS
     Dosage: 120 MILLIGRAM;
     Dates: start: 20110328
  21. ESOMEPRAZOLE MAGNESIUM [Concomitant]
     Indication: GASTROOESOPHAGEAL REFLUX DISEASE
     Dosage: 1 DOSAGE FORMS;
  22. INSULIN ASPART [Concomitant]
     Indication: DIABETES MELLITUS
     Dosage: 100 UNIT/ML
     Dates: start: 20090605
  23. PRASUGREL HYDROCHLORIDE [Concomitant]
     Indication: CORONARY ARTERY DISEASE
     Dosage: 10 MILLIGRAM;
  24. ALPHA-D-GALACTOSIDASE [Concomitant]
     Indication: FLATULENCE
     Dates: start: 20110110
  25. INVESTIGATIONAL DRUG - ABT-888 (VELIPARIB) [Suspect]
     Indication: NEOPLASM
     Dosage: 160 MILLIGRAM; DAYS 15-19 IN CYCLE 1, DAYS 1-5, 15-19 OF EACH SUBSEQUENT CYCLE
     Route: 048
     Dates: start: 20110124, end: 20110311
  26. MULTI-VITAMIN [Concomitant]
     Indication: MEDICAL DIET
     Dosage: 1 TABLET;
  27. COLECALCIFEROL [Concomitant]
     Indication: MEDICAL DIET
     Dosage: 1000 UNITS
  28. L-GLUTATHIONE [Concomitant]
     Indication: MEDICAL DIET
     Dosage: 50 MILLIGRAM;
     Dates: start: 20110205
  29. LEUCOVORIN CALCIUM [Suspect]
     Indication: NEOPLASM
     Dosage: ON DAY 1 OF EACH 28 DAY CYCLE
     Route: 042
     Dates: start: 20110110
  30. LEUCOVORIN CALCIUM [Suspect]
     Indication: NEOPLASM
     Route: 042
     Dates: start: 20110110

REACTIONS (1)
  - PYREXIA [None]
